FAERS Safety Report 4595034-0 (Version None)
Quarter: 2005Q1

REPORT INFORMATION
  Report Type: 
  Country: None (occurrence: None)
  Receive Date: 20050223
  Receipt Date: 20050216
  Transmission Date: 20050727
  Serious: Yes (Hospitalization)
  Sender: FDA-Public Use
  Company Number: THQ2005A00184

PATIENT
  Age: 60 Year
  Sex: Female

DRUGS (8)
  1. LANSOPRAZOLE [Suspect]
     Indication: DYSPEPSIA
     Dosage: 15 MG (15 MG, 1 IN 1 D) PER ORAL
     Route: 048
     Dates: start: 20030101, end: 20030101
  2. LANSOPRAZOLE [Suspect]
     Indication: DYSPEPSIA
     Dosage: 15 MG (15 MG, 1 IN 1 D) PER ORAL
     Route: 048
     Dates: start: 20030701, end: 20030101
  3. LANSOPRAZOLE [Suspect]
     Indication: DYSPEPSIA
     Dosage: 15 MG (15 MG, 1 IN 1 D) PER ORAL
     Route: 048
     Dates: end: 20030101
  4. IMATINIB [Suspect]
     Indication: GASTROINTESTINAL STROMAL TUMOUR
     Dosage: SEE IMAGE
     Route: 048
     Dates: start: 20030101, end: 20030101
  5. IMATINIB [Suspect]
     Indication: GASTROINTESTINAL STROMAL TUMOUR
     Dosage: SEE IMAGE
     Route: 048
     Dates: start: 20030501, end: 20030101
  6. IMATINIB [Suspect]
     Indication: GASTROINTESTINAL STROMAL TUMOUR
     Dosage: SEE IMAGE
     Route: 048
     Dates: end: 20030101
  7. PREDNISONE TAB [Concomitant]
  8. DESLORATADINE [Concomitant]

REACTIONS (3)
  - DRUG INTERACTION [None]
  - MEDICATION ERROR [None]
  - STEVENS-JOHNSON SYNDROME [None]
